FAERS Safety Report 23175815 (Version 1)
Quarter: 2023Q4

REPORT INFORMATION
  Report Type: Report from Study
  Country: US (occurrence: US)
  Receive Date: 20231113
  Receipt Date: 20231113
  Transmission Date: 20240110
  Serious: No
  Sender: FDA-Public Use
  Company Number: US-ALXN-A202313270

PATIENT
  Sex: Male
  Weight: 112 kg

DRUGS (1)
  1. ULTOMIRIS [Suspect]
     Active Substance: RAVULIZUMAB-CWVZ
     Indication: Myasthenia gravis
     Dosage: UNK
     Route: 065
     Dates: start: 20231003

REACTIONS (3)
  - Drug ineffective [Unknown]
  - Fall [Unknown]
  - Feeling abnormal [Not Recovered/Not Resolved]
